FAERS Safety Report 17759514 (Version 1)
Quarter: 2020Q2

REPORT INFORMATION
  Report Type: Other
  Country: CN (occurrence: CN)
  Receive Date: 20200508
  Receipt Date: 20200508
  Transmission Date: 20200714
  Serious: Yes (Hospitalization, Other)
  Sender: FDA-Public Use
  Company Number: CN-HEALTHCARE PHARMACEUTICALS LTD.-2083611

PATIENT
  Age: 32 Year
  Sex: Female

DRUGS (3)
  1. GLUCOSE (DEXTROSE MONOHYDRATE) [Suspect]
     Active Substance: DEXTROSE MONOHYDRATE
     Route: 041
     Dates: start: 20170317
  2. DOXORUBICIN HYDROCHLORIDE. [Suspect]
     Active Substance: DOXORUBICIN HYDROCHLORIDE
     Indication: HODGKIN^S DISEASE MIXED CELLULARITY STAGE UNSPECIFIED
     Route: 041
     Dates: start: 20170317, end: 20170317
  3. DEXAMETHASONE. [Suspect]
     Active Substance: DEXAMETHASONE
     Route: 065
     Dates: start: 20170317

REACTIONS (4)
  - Abdominal pain [Recovering/Resolving]
  - Palpitations [Recovering/Resolving]
  - Anaphylactic shock [Recovering/Resolving]
  - Amaurosis fugax [Recovering/Resolving]

NARRATIVE: CASE EVENT DATE: 20170317
